FAERS Safety Report 22610931 (Version 1)
Quarter: 2023Q2

REPORT INFORMATION
  Report Type: Spontaneous
  Country: US (occurrence: US)
  Receive Date: 20230616
  Receipt Date: 20230616
  Transmission Date: 20230721
  Serious: Yes (Other)
  Sender: FDA-Public Use
  Company Number: US-SUN PHARMACEUTICAL INDUSTRIES LTD-2023R1-394968

PATIENT
  Age: 76 Year
  Sex: Male

DRUGS (2)
  1. BUDESONIDE [Suspect]
     Active Substance: BUDESONIDE
     Indication: Hepatotoxicity
     Dosage: 9 MILLIGRAM, DAILY
     Route: 048
  2. URSODIOL [Suspect]
     Active Substance: URSODIOL
     Indication: Hepatotoxicity
     Dosage: 1000 MILLIGRAM, DAILY
     Route: 065

REACTIONS (4)
  - Drug ineffective [Unknown]
  - Metastatic neoplasm [Unknown]
  - Drug-induced liver injury [Unknown]
  - Toxicity to various agents [Unknown]
